FAERS Safety Report 18527456 (Version 1)
Quarter: 2020Q4

REPORT INFORMATION
  Report Type: Spontaneous
  Country: GB (occurrence: GB)
  Receive Date: 20201120
  Receipt Date: 20201120
  Transmission Date: 20210114
  Serious: Yes (Life-Threatening, Hospitalization)
  Sender: FDA-Public Use
  Company Number: GB-ASTRAZENECA-2020SF51665

PATIENT
  Age: 65 Year
  Sex: Male
  Weight: 55.3 kg

DRUGS (18)
  1. PARACETAMOL [Concomitant]
     Active Substance: ACETAMINOPHEN
  2. LANSOPRAZOLE. [Concomitant]
     Active Substance: LANSOPRAZOLE
  3. TIOTROPIUM [Concomitant]
     Active Substance: TIOTROPIUM
  4. TRAVOPROST. [Concomitant]
     Active Substance: TRAVOPROST
  5. BISOPROLOL [Concomitant]
     Active Substance: BISOPROLOL
  6. SALBUTAMOL [Concomitant]
     Active Substance: ALBUTEROL
  7. VITAMIN B COMPLEX STRONG [Concomitant]
  8. SERETIDE [Concomitant]
     Active Substance: FLUTICASONE PROPIONATE\SALMETEROL XINAFOATE
  9. GLIMEPIRIDE. [Concomitant]
     Active Substance: GLIMEPIRIDE
  10. METFORMIN HYDROCHLORIDE. [Concomitant]
     Active Substance: METFORMIN HYDROCHLORIDE
  11. PERINDOPRIL [Concomitant]
     Active Substance: PERINDOPRIL
  12. ALLOPURINOL. [Concomitant]
     Active Substance: ALLOPURINOL
  13. ATORVASTATIN [Concomitant]
     Active Substance: ATORVASTATIN
  14. MONTELUKAST SODIUM. [Concomitant]
     Active Substance: MONTELUKAST SODIUM
  15. ACETYLSALICYLIC ACID [Concomitant]
     Active Substance: ASPIRIN
  16. TADALAFIL. [Concomitant]
     Active Substance: TADALAFIL
  17. DAPAGLIFLOZIN. [Suspect]
     Active Substance: DAPAGLIFLOZIN
     Indication: TYPE 2 DIABETES MELLITUS
     Route: 048
  18. MEBEVERINE HYDROCHLORIDE [Concomitant]
     Active Substance: MEBEVERINE HYDROCHLORIDE

REACTIONS (1)
  - Diabetic ketoacidosis [Not Recovered/Not Resolved]

NARRATIVE: CASE EVENT DATE: 20201028
